FAERS Safety Report 5625091-1 (Version None)
Quarter: 2008Q1

REPORT INFORMATION
  Report Type: 
  Country: None (occurrence: None)
  Receive Date: 20080213
  Receipt Date: 20080117
  Transmission Date: 20080703
  Serious: No
  Sender: FDA-Public Use
  Company Number: US-BOEHRINGER INGELHEIM GMBH, GERMANY-2008-BP-00847BP

PATIENT
  Sex: Female

DRUGS (4)
  1. MIRAPEX [Suspect]
     Indication: RESTLESS LEGS SYNDROME
     Route: 048
     Dates: start: 20020101
  2. THYROID TAB [Concomitant]
  3. OXYBUTIN [Concomitant]
     Indication: BLADDER DISORDER
  4. IRON [Concomitant]
     Indication: RESTLESS LEGS SYNDROME

REACTIONS (2)
  - BLOOD PRESSURE INCREASED [None]
  - JOINT SWELLING [None]
